FAERS Safety Report 15260239 (Version 1)
Quarter: 2018Q3

REPORT INFORMATION
  Report Type: Other
  Country: CA (occurrence: CA)
  Receive Date: 20180809
  Receipt Date: 20180809
  Transmission Date: 20181010
  Serious: Yes (Death, Other)
  Sender: FDA-Public Use
  Company Number: CA-PFIZER INC-2018320436

PATIENT
  Age: 23 Year
  Sex: Male

DRUGS (9)
  1. MOCLOBEMIDE [Interacting]
     Active Substance: MOCLOBEMIDE
     Dosage: UNK
     Route: 048
  2. DEXTROMETHORPHAN HYDROBROMIDE. [Suspect]
     Active Substance: DEXTROMETHORPHAN HYDROBROMIDE
     Dosage: UNK
     Route: 065
  3. ACETANILIDE/PHENIRAMINE MALEATE/PHENYLEPHRINE HYDROCHLORIDE/VITAMIN C [Concomitant]
     Dosage: UNK
  4. NORDAZEPAM [Concomitant]
     Active Substance: NORDAZEPAM
     Dosage: UNK
  5. SERTRALINE HCL [Interacting]
     Active Substance: SERTRALINE HYDROCHLORIDE
     Dosage: UNK
     Route: 065
  6. SERTRALINE HCL [Interacting]
     Active Substance: SERTRALINE HYDROCHLORIDE
     Dosage: UNK
  7. FLUOXETINE [Concomitant]
     Active Substance: FLUOXETINE HYDROCHLORIDE
     Dosage: UNK
  8. MANERIX [Interacting]
     Active Substance: MOCLOBEMIDE
     Dosage: UNK
     Route: 048
  9. PHENIRAMINE [Concomitant]
     Active Substance: PHENIRAMINE
     Dosage: UNK

REACTIONS (8)
  - Hyperhidrosis [Fatal]
  - Drug interaction [Fatal]
  - Pulmonary congestion [Fatal]
  - Chills [Fatal]
  - Completed suicide [Fatal]
  - Agitation [Fatal]
  - Intentional overdose [Fatal]
  - Toxicity to various agents [Fatal]
